FAERS Safety Report 4853267-X (Version None)
Quarter: 2005Q4

REPORT INFORMATION
  Report Type: 
  Country: None (occurrence: None)
  Receive Date: 20051214
  Receipt Date: 20051012
  Transmission Date: 20060501
  Serious: Yes (Hospitalization, Disabling)
  Sender: FDA-Public Use
  Company Number: GB-SANOFI-SYNTHELABO-A01200507131

PATIENT
  Age: 55 Year
  Sex: Male
  Weight: 79 kg

DRUGS (3)
  1. OXALIPLATIN [Suspect]
     Indication: COLORECTAL CANCER
     Route: 042
     Dates: start: 20050315, end: 20050705
  2. METOCLOPRAMIDE [Concomitant]
     Indication: ANTIEMETIC SUPPORTIVE CARE
     Dosage: 20 MG
     Dates: start: 20050301, end: 20050701
  3. LANSOPRAZOLE [Concomitant]
     Dosage: 30 MG
     Dates: start: 20050301

REACTIONS (5)
  - AUTONOMIC NEUROPATHY [None]
  - DIZZINESS [None]
  - DYSAESTHESIA [None]
  - HYPERTENSION [None]
  - PERIPHERAL SENSORY NEUROPATHY [None]
